FAERS Safety Report 10012580 (Version 2)
Quarter: 2014Q1

REPORT INFORMATION
  Report Type: Spontaneous
  Country: FR (occurrence: FR)
  Receive Date: 20140314
  Receipt Date: 20140327
  Transmission Date: 20141002
  Serious: Yes (Other)
  Sender: FDA-Public Use
  Company Number: FR-PFIZER INC-2014070916

PATIENT
  Age: 11 Year
  Sex: Male

DRUGS (6)
  1. NEURONTIN [Suspect]
     Indication: NEURALGIA
     Dosage: 100 MG, 2X/DAY
     Route: 048
     Dates: start: 20140214, end: 20140218
  2. NEURONTIN [Interacting]
     Dosage: 200 MG, 2X/DAY
     Route: 048
     Dates: start: 20140219, end: 20140221
  3. NEURONTIN [Interacting]
     Dosage: 100 MG, 2X/DAY
     Route: 048
     Dates: start: 20140222, end: 20140225
  4. RIVOTRIL [Interacting]
     Indication: NEURALGIA
     Dosage: 8 GTT, 3X/DAY
     Route: 048
     Dates: start: 20140115
  5. RIVOTRIL [Interacting]
     Dosage: UNK
     Route: 048
     Dates: start: 20140214, end: 20140221
  6. PARACETAMOL [Concomitant]
     Dosage: UNK

REACTIONS (3)
  - Drug interaction [Recovered/Resolved]
  - Apathy [Recovered/Resolved]
  - Suicidal ideation [Recovered/Resolved]
